FAERS Safety Report 15034179 (Version 1)
Quarter: 2018Q3

REPORT INFORMATION
  Report Type: Spontaneous
  Country: US (occurrence: US)
  Receive Date: 20180620
  Receipt Date: 20180620
  Transmission Date: 20181010
  Serious: No
  Sender: FDA-Public Use
  Company Number: US-LUPIN PHARMACEUTICALS INC.-2018-02375

PATIENT
  Age: 33 Year
  Sex: Female

DRUGS (1)
  1. OXYCODONE AND ACETAMINOPHEN TABLETS 10 MG/325 MG [Suspect]
     Active Substance: ACETAMINOPHEN\OXYCODONE HYDROCHLORIDE
     Indication: TRIGEMINAL NEURALGIA
     Dosage: 4?5 TABLET 10?325 MG PILLS DAILY
     Route: 048

REACTIONS (2)
  - Sedation [Unknown]
  - Constipation [Unknown]
